FAERS Safety Report 10417141 (Version 1)
Quarter: 2014Q3

REPORT INFORMATION
  Report Type: Spontaneous
  Country: US (occurrence: US)
  Receive Date: 20140828
  Receipt Date: 20140828
  Transmission Date: 20150326
  Serious: No
  Sender: FDA-Public Use
  Company Number: US-ENDO PHARMACEUTICALS INC.-HYDR20130012

PATIENT
  Sex: Female

DRUGS (1)
  1. HYDROCORTISONE TABLETS 5MG [Suspect]
     Active Substance: HYDROCORTISONE
     Indication: PRODUCT USED FOR UNKNOWN INDICATION
     Route: 048

REACTIONS (2)
  - Arthritis [Unknown]
  - Reaction to drug excipients [Unknown]
